FAERS Safety Report 4274175-1 (Version None)
Quarter: 2004Q1

REPORT INFORMATION
  Report Type: 
  Country: None (occurrence: None)
  Receive Date: 20040115
  Receipt Date: 20040105
  Transmission Date: 20041129
  Serious: Yes (Other)
  Sender: FDA-Public Use
  Company Number: 2003125459

PATIENT
  Sex: Male

DRUGS (2)
  1. NARDIL [Suspect]
     Indication: ILL-DEFINED DISORDER
  2. ALL OTHER THERAPEUTIC PRODUCTS [Suspect]
     Indication: ILL-DEFINED DISORDER

REACTIONS (5)
  - ACCIDENT [None]
  - BIPOLAR DISORDER [None]
  - DRUG DEPENDENCE [None]
  - INCOHERENT [None]
  - TOOTH DISORDER [None]
